FAERS Safety Report 18034917 (Version 1)
Quarter: 2020Q3

REPORT INFORMATION
  Report Type: Spontaneous
  Country: US (occurrence: US)
  Receive Date: 20200716
  Receipt Date: 20200716
  Transmission Date: 20201103
  Serious: Yes (Hospitalization)
  Sender: FDA-Public Use
  Company Number: None

PATIENT
  Age: 63 Year
  Sex: Female

DRUGS (5)
  1. NABEPRAZOLE [Concomitant]
  2. ALPRAZOLAM. [Concomitant]
     Active Substance: ALPRAZOLAM
  3. XELJANZ [Suspect]
     Active Substance: TOFACITINIB CITRATE
     Indication: RHEUMATOID ARTHRITIS
     Route: 048
     Dates: start: 20180310
  4. HYOSCYAMINE. [Concomitant]
     Active Substance: HYOSCYAMINE
  5. FAMOTIDINE. [Concomitant]
     Active Substance: FAMOTIDINE

REACTIONS (7)
  - Condition aggravated [None]
  - Back pain [None]
  - Tarsal tunnel syndrome [None]
  - Pneumonia [None]
  - Thrombosis [None]
  - Pain in extremity [None]
  - Alopecia [None]

NARRATIVE: CASE EVENT DATE: 202001
